FAERS Safety Report 9160268 (Version 1)
Quarter: 2013Q1

REPORT INFORMATION
  Report Type: Spontaneous
  Country: PT (occurrence: None)
  Receive Date: 20130214
  Receipt Date: 20130214
  Transmission Date: 20140127
  Serious: Yes (Life-Threatening)
  Sender: FDA-Public Use
  Company Number: INT_00210_2013

PATIENT
  Age: 48 Year
  Sex: Female

DRUGS (10)
  1. CEFAZOLIN [Suspect]
     Indication: PROPHYLAXIS
     Dosage: TOTAL DOSE-2 G INTRAVENOUS (NOT OTHERWISE SPECIFIED)
     Route: 042
     Dates: start: 20130111, end: 20130111
  2. PROPOFOL [Suspect]
     Indication: INDUCTION OF ANAESTHESIA
     Dosage: TOTAL DOSE-200 MG
     Dates: start: 20130111, end: 20130111
  3. FENTANILO [Suspect]
     Indication: ANAESTHESIA
     Dosage: TOTAL DOSE - 2MG) INTRAVENOUS ( NOT OTHERWISE SPECIFIED)
     Route: 042
     Dates: start: 20130111, end: 20130111
  4. MIDAZOLAM [Suspect]
     Indication: ANAESTHESIA
     Dosage: DOSE- 2MG] INTRAVENOUS (NOT OTHERWISE SPECIFIED)
     Dates: start: 20130111, end: 20130111
  5. SUXAMETHONIUM CHLORIDE [Suspect]
     Indication: ANAESTHESIA
     Dosage: TOTAL DOSE -100 MG
  6. ATRACURIUM BESYLATE [Suspect]
     Indication: NEUROMUSCULAR BLOCKING THERAPY
     Dosage: TOTAL DOSE-50 MG
  7. PARACETAMOL [Suspect]
     Indication: PAIN
     Dosage: TOTAL DOSE -1 GL
  8. BLUE PATENTE V (SULPHAN BLUE) [Suspect]
     Indication: PRODUCT USED FOR UNKNOWN INDICATION
     Dosage: AD TOTAL DOSE -2 ML??11PA605A
  9. PANTOPRAZOL [Concomitant]
  10. CONTRACEPTIVES [Concomitant]

REACTIONS (2)
  - Anaphylactic reaction [None]
  - Hypotension [None]
